FAERS Safety Report 15893063 (Version 2)
Quarter: 2019Q1

REPORT INFORMATION
  Report Type: Spontaneous
  Country: JP (occurrence: JP)
  Receive Date: 20190130
  Receipt Date: 20190202
  Transmission Date: 20190417
  Serious: Yes (Death, Hospitalization)
  Sender: FDA-Public Use
  Company Number: JP-ROCHE-2254894

PATIENT
  Age: 78 Year
  Sex: Male
  Weight: 64 kg

DRUGS (10)
  1. AVASTIN [Suspect]
     Active Substance: BEVACIZUMAB
     Dosage: ADMINISTRATION PERIOD: 2 COURSES
     Route: 041
  2. OXALIPLATIN. [Concomitant]
     Active Substance: OXALIPLATIN
     Indication: RECTAL CANCER
     Dosage: DOSAGE IS UNCERTAIN. ?ADMINISTRATION PERIOD: 5 COURSES
     Route: 041
  3. FLUOROURACIL. [Concomitant]
     Active Substance: FLUOROURACIL
     Dosage: DOSAGE IS UNCERTAIN. ?ADMINISTRATION PERIOD: 2 COURSES
     Route: 041
  4. FLUOROURACIL. [Concomitant]
     Active Substance: FLUOROURACIL
     Dosage: DOSAGE IS UNCERTAIN. ?ADMINISTRATION PERIOD: 2 COURSES
     Route: 040
  5. IRINOTECAN HYDROCHLORIDE. [Concomitant]
     Active Substance: IRINOTECAN HYDROCHLORIDE
     Indication: RECTAL CANCER
     Dosage: DOSAGE IS UNCERTAIN. ?ADMINISTRATION PERIOD: 2 COURSES
     Route: 041
  6. CALCIUM LEVOFOLINATE [Concomitant]
     Active Substance: LEVOLEUCOVORIN CALCIUM
     Dosage: DOSAGE IS UNCERTAIN. ?ADMINISTRATION PERIOD: 2 COURSES
     Route: 041
  7. FLUOROURACIL. [Concomitant]
     Active Substance: FLUOROURACIL
     Indication: RECTAL CANCER
     Dosage: DOSAGE IS UNCERTAIN. ?ADMINISTRATION PERIOD: 5 COURSES
     Route: 040
  8. AVASTIN [Suspect]
     Active Substance: BEVACIZUMAB
     Indication: RECTAL CANCER
     Dosage: ADMINISTRATION PERIOD: 5 COURSES
     Route: 041
  9. FLUOROURACIL. [Concomitant]
     Active Substance: FLUOROURACIL
     Dosage: DOSAGE IS UNCERTAIN. ?ADMINISTRATION PERIOD: 5 COURSES
     Route: 041
  10. CALCIUM LEVOFOLINATE [Concomitant]
     Active Substance: LEVOLEUCOVORIN CALCIUM
     Indication: RECTAL CANCER
     Dosage: DOSAGE IS UNCERTAIN. ?ADMINISTRATION PERIOD: 5 COURSES
     Route: 041

REACTIONS (3)
  - Ileal perforation [Unknown]
  - Pneumonia aspiration [Fatal]
  - Peritonitis [Unknown]
